FAERS Safety Report 9792450 (Version 1)
Quarter: 2014Q1

REPORT INFORMATION
  Report Type: Spontaneous
  Country: US (occurrence: US)
  Receive Date: 20140102
  Receipt Date: 20140102
  Transmission Date: 20141002
  Serious: No
  Sender: FDA-Public Use
  Company Number: US-BIOGENIDEC-2013BI123354

PATIENT
  Age: 59 Year
  Sex: Female

DRUGS (20)
  1. TECFIDERA [Suspect]
     Indication: MULTIPLE SCLEROSIS
     Route: 048
     Dates: start: 201311
  2. ASPIRIN [Concomitant]
  3. ATENOLOL [Concomitant]
  4. AZELASTINE [Concomitant]
  5. BENEFIBER [Concomitant]
  6. BUPROPION [Concomitant]
  7. CALCIUM + D [Concomitant]
  8. CLONAZEPAM [Concomitant]
  9. FISH OIL [Concomitant]
  10. LEVOTHYROXINE [Concomitant]
  11. ESTROPIPATE [Concomitant]
  12. MIRALAX [Concomitant]
  13. PHAZYME [Concomitant]
  14. OMEPRAZOLE [Concomitant]
  15. ROPINOROLE [Concomitant]
  16. SAVELLA [Concomitant]
  17. SERTRALINE [Concomitant]
  18. TRAMADOL [Concomitant]
  19. ZOLPIDEM [Concomitant]
  20. TROSPIUM CHLORIDE [Concomitant]

REACTIONS (1)
  - Intestinal stenosis [Not Recovered/Not Resolved]
